FAERS Safety Report 18764362 (Version 1)
Quarter: 2021Q1

REPORT INFORMATION
  Report Type: Spontaneous
  Country: US (occurrence: US)
  Receive Date: 20210120
  Receipt Date: 20210120
  Transmission Date: 20210419
  Serious: No
  Sender: FDA-Public Use
  Company Number: US-PFIZER INC-2021026694

PATIENT
  Age: 58 Year
  Sex: Male
  Weight: 83 kg

DRUGS (2)
  1. INLYTA [Suspect]
     Active Substance: AXITINIB
     Indication: RENAL CANCER
     Dosage: 10 MG
     Route: 048
     Dates: start: 2020, end: 2020
  2. INLYTA [Suspect]
     Active Substance: AXITINIB
     Dosage: 4 MG, 2X/DAY(1MG, FOUR TABLETS BY MOUTH TWICE DAILY)
     Route: 048
     Dates: start: 2020

REACTIONS (5)
  - Diarrhoea [Unknown]
  - Glossitis [Recovering/Resolving]
  - Tenderness [Unknown]
  - Alopecia [Unknown]
  - Blister [Unknown]

NARRATIVE: CASE EVENT DATE: 2020
